FAERS Safety Report 22261773 (Version 1)
Quarter: 2023Q2

REPORT INFORMATION
  Report Type: Report from Study
  Country: US (occurrence: US)
  Receive Date: 20230428
  Receipt Date: 20230428
  Transmission Date: 20230721
  Serious: Yes (Hospitalization, Other)
  Sender: FDA-Public Use
  Company Number: US-ABBVIE-4128010

PATIENT
  Sex: Female
  Weight: 74.8 kg

DRUGS (1)
  1. SKYRIZI [Suspect]
     Active Substance: RISANKIZUMAB-RZAA
     Indication: Product used for unknown indication
     Dates: start: 20230114

REACTIONS (3)
  - Dysarthria [Unknown]
  - Cerebrovascular accident [Unknown]
  - Visual impairment [Unknown]
